FAERS Safety Report 10462631 (Version 1)
Quarter: 2014Q3

REPORT INFORMATION
  Report Type: Spontaneous
  Country: NL (occurrence: NL)
  Receive Date: 20140918
  Receipt Date: 20140918
  Transmission Date: 20150326
  Serious: Yes (Life-Threatening)
  Sender: FDA-Public Use
  Company Number: PHHY2014NL120704

PATIENT
  Sex: Female

DRUGS (3)
  1. TEGRETOL [Suspect]
     Active Substance: CARBAMAZEPINE
     Indication: PARTIAL SEIZURES
     Dosage: 3 DF, PER DAY (200MG)
     Dates: start: 1969, end: 2005
  2. TEGRETOL [Suspect]
     Active Substance: CARBAMAZEPINE
     Dosage: 1 DF, PER DAY (100 MG)
     Dates: start: 2012, end: 201408
  3. TEGRETOL [Suspect]
     Active Substance: CARBAMAZEPINE
     Dosage: 2 DF, PER DAY (200MG)
     Dates: start: 2005, end: 2012

REACTIONS (5)
  - Liver disorder [Recovered/Resolved]
  - Dizziness [Recovered/Resolved]
  - Pancreatic disorder [Recovered/Resolved]
  - Insomnia [Recovered/Resolved]
  - Visual acuity reduced [Recovered/Resolved]

NARRATIVE: CASE EVENT DATE: 1969
